FAERS Safety Report 8610283-X (Version None)
Quarter: 2012Q3

REPORT INFORMATION
  Report Type: 
  Country: None (occurrence: None)
  Receive Date: 20120810
  Receipt Date: 20120810
  Transmission Date: 20120928
  Serious: Yes (Other)
  Sender: FDA-Public Use
  Company Number: None

PATIENT
  Sex: Male
  Weight: 76.6579 kg

DRUGS (2)
  1. LAMICTAL [Concomitant]
  2. LAMICTAL [Suspect]
     Indication: BIPOLAR II DISORDER
     Dosage: 100 MG, QHS, PO
     Route: 048
     Dates: start: 20120626, end: 20120808

REACTIONS (1)
  - ERYTHEMA MULTIFORME [None]
